FAERS Safety Report 16633664 (Version 1)
Quarter: 2019Q3

REPORT INFORMATION
  Report Type: Report from Study
  Country: US (occurrence: US)
  Receive Date: 20190725
  Receipt Date: 20190725
  Transmission Date: 20191004
  Serious: Yes (Other)
  Sender: FDA-Public Use
  Company Number: US-BAUSCH-BL-2019-020969

PATIENT
  Sex: Female

DRUGS (1)
  1. SILIQ [Suspect]
     Active Substance: BRODALUMAB
     Indication: PRODUCT USED FOR UNKNOWN INDICATION
     Dosage: SILIQ 210 MG/1.5 ML SOSY, INJECT 210 MG SUBCUTANEOUSLY AT WEEK 0,1, 2 AS DIRECTED.
     Route: 058

REACTIONS (1)
  - Pancreatitis [Unknown]
